FAERS Safety Report 12675880 (Version 1)
Quarter: 2016Q3

REPORT INFORMATION
  Report Type: Spontaneous
  Country: US (occurrence: US)
  Receive Date: 20160823
  Receipt Date: 20160823
  Transmission Date: 20161109
  Serious: No
  Sender: FDA-Public Use
  Company Number: US-JAZZ-2016-US-006646

PATIENT
  Sex: Female

DRUGS (10)
  1. SEROQUEL [Concomitant]
     Active Substance: QUETIAPINE FUMARATE
  2. LYRICA [Concomitant]
     Active Substance: PREGABALIN
  3. ZOLOFT [Concomitant]
     Active Substance: SERTRALINE HYDROCHLORIDE
  4. XYREM [Suspect]
     Active Substance: SODIUM OXYBATE
     Dosage: 4.5 G, BID
     Route: 048
     Dates: start: 200701
  5. ADVIL [Concomitant]
     Active Substance: IBUPROFEN
  6. TYLENOL EXTRA STRENGTH [Concomitant]
     Active Substance: ACETAMINOPHEN
  7. ASPIRIN. [Concomitant]
     Active Substance: ASPIRIN
  8. CARTIA XT [Concomitant]
     Active Substance: DILTIAZEM HYDROCHLORIDE
  9. XYREM [Suspect]
     Active Substance: SODIUM OXYBATE
     Indication: SLEEP DISORDER
     Dosage: 3 G, BID
     Route: 048
     Dates: start: 200604, end: 200701
  10. DIAZEPAM. [Concomitant]
     Active Substance: DIAZEPAM

REACTIONS (2)
  - Hunger [Unknown]
  - Insomnia [Unknown]
